FAERS Safety Report 9927732 (Version 5)
Quarter: 2023Q1

REPORT INFORMATION
  Report Type: Spontaneous
  Country: GB (occurrence: GB)
  Receive Date: 20140227
  Receipt Date: 20230309
  Transmission Date: 20230417
  Serious: Yes (Other)
  Sender: FDA-Public Use
  Company Number: GB-DRREDDYS-GER/UKI/14/0038414

PATIENT
  Sex: Female

DRUGS (10)
  1. OMEPRAZOLE [Interacting]
     Active Substance: OMEPRAZOLE
     Indication: Product used for unknown indication
     Route: 048
  2. DEXAMETHASONE [Interacting]
     Active Substance: DEXAMETHASONE
     Indication: Product used for unknown indication
  3. DIAZEPAM [Interacting]
     Active Substance: DIAZEPAM
     Indication: Product used for unknown indication
  4. IBUPROFEN [Interacting]
     Active Substance: IBUPROFEN
     Indication: Product used for unknown indication
  5. LORAZEPAM [Interacting]
     Active Substance: LORAZEPAM
     Indication: Product used for unknown indication
  6. METOCLOPRAMIDE [Interacting]
     Active Substance: METOCLOPRAMIDE
     Indication: Product used for unknown indication
  7. ACETAMINOPHEN [Interacting]
     Active Substance: ACETAMINOPHEN
     Indication: Product used for unknown indication
  8. PREDNISOLONE [Interacting]
     Active Substance: PREDNISOLONE
     Indication: Product used for unknown indication
  9. ZOMIG [Interacting]
     Active Substance: ZOLMITRIPTAN
     Indication: Migraine
     Route: 048
  10. DIPHENHYDRAMINE HYDROCHLORIDE [Interacting]
     Active Substance: DIPHENHYDRAMINE HYDROCHLORIDE
     Indication: Product used for unknown indication

REACTIONS (2)
  - Breast cancer [Unknown]
  - Drug interaction [Unknown]
